FAERS Safety Report 9209341 (Version 1)
Quarter: 2013Q1

REPORT INFORMATION
  Report Type: Spontaneous
  Country: US (occurrence: None)
  Receive Date: 20120820
  Receipt Date: 20120820
  Transmission Date: 20140127
  Serious: No
  Sender: FDA-Public Use
  Company Number: 1000030296

PATIENT
  Age: 58 Year
  Sex: Female

DRUGS (9)
  1. VIIBRYD (VILAZODONE)(10 MILLIGRAM, TABLETS) [Suspect]
     Indication: DEPRESSION
     Route: 048
     Dates: start: 20120501
  2. VIIBRYD (VILAZODONE)(10 MILLIGRAM, TABLETS) [Suspect]
     Indication: ANXIETY
     Route: 048
     Dates: start: 20120501
  3. ZOLOFT (SERTRALINE HYDROCHLORIDE) [Suspect]
     Indication: DEPRESSION
  4. ZOLOFT (SERTRALINE HYDROCHLORIDE) [Suspect]
     Indication: ANXIETY
  5. NORVASC (AMLODIPINE BESILATE) (AMLODIPINE BESILATE) [Concomitant]
  6. TRICOR (FENOFIBRATE (FENOFIBRATE) [Concomitant]
  7. SYNTHROID (LEVOTHYROXINE SODIUM (LEVOTHYROXINE SODIUM) [Concomitant]
  8. NEXIUM (ESOMEPRAZOLE) (ESOMEPRAZOLE) [Concomitant]
  9. XANAX (ALPRAZOLAM) (ALPRAZOLAM) [Concomitant]

REACTIONS (1)
  - Anxiety [None]
